FAERS Safety Report 4313242-0 (Version None)
Quarter: 2004Q1

REPORT INFORMATION
  Report Type: 
  Country: None (occurrence: None)
  Receive Date: 20040304
  Receipt Date: 20040223
  Transmission Date: 20041129
  Serious: Yes (Hospitalization)
  Sender: FDA-Public Use
  Company Number: 2004011749

PATIENT
  Age: 84 Year
  Sex: Female

DRUGS (1)
  1. LISTERINE ANTISEPTIC MOUTHWASH [Suspect]
     Indication: DENTAL CARE
     Dosage: UNSPECIFIED AMOUNT, ORAL
     Route: 048
     Dates: start: 20040213, end: 20040213

REACTIONS (3)
  - DYSPNOEA [None]
  - LUNG INFECTION [None]
  - PNEUMONIA ASPIRATION [None]
